FAERS Safety Report 22517546 (Version 1)
Quarter: 2023Q2

REPORT INFORMATION
  Report Type: Spontaneous
  Country: CA (occurrence: CA)
  Receive Date: 20230604
  Receipt Date: 20230604
  Transmission Date: 20230722
  Serious: Yes (Hospitalization, Other)
  Sender: FDA-Public Use
  Company Number: CA-AUROBINDO-AUR-APL-2023-039480

PATIENT
  Age: 60 Year
  Sex: Male

DRUGS (3)
  1. CINACALCET [Suspect]
     Active Substance: CINACALCET
     Indication: Hypercalcaemia
     Dosage: UNK
     Route: 065
  2. PROLIA [Suspect]
     Active Substance: DENOSUMAB
     Indication: Hyperparathyroidism primary
     Dosage: UNK
     Route: 058
  3. CALCITONIN SALMON [Concomitant]
     Active Substance: CALCITONIN SALMON
     Indication: Hyperparathyroidism primary
     Dosage: UNK
     Route: 065

REACTIONS (11)
  - Atrial fibrillation [Unknown]
  - Drug ineffective for unapproved indication [Unknown]
  - Hyperparathyroidism primary [Unknown]
  - Hypoxia [Unknown]
  - Hypervolaemia [Unknown]
  - Nephrogenic diabetes insipidus [Unknown]
  - Off label use [Unknown]
  - Pneumonia [Unknown]
  - Renal failure [Unknown]
  - Therapeutic product effect incomplete [Unknown]
  - Venous thrombosis [Unknown]
